FAERS Safety Report 15973871 (Version 2)
Quarter: 2019Q1

REPORT INFORMATION
  Report Type: Spontaneous
  Country: US (occurrence: US)
  Receive Date: 20190217
  Receipt Date: 20190303
  Transmission Date: 20190418
  Serious: Yes (Death, Other)
  Sender: FDA-Public Use
  Company Number: PHEH2019US007125

PATIENT
  Sex: Female

DRUGS (1)
  1. TASIGNA [Suspect]
     Active Substance: NILOTINIB
     Indication: CHRONIC MYELOID LEUKAEMIA
     Dosage: UNK UNK, BID
     Route: 048
     Dates: start: 20100204

REACTIONS (29)
  - Duodenitis [Unknown]
  - Abdominal pain [Unknown]
  - Decreased appetite [Unknown]
  - Cerebrovascular accident [Fatal]
  - Bile duct stone [Unknown]
  - Dysphagia [Unknown]
  - Chronic granulomatous disease [Unknown]
  - Candida infection [Unknown]
  - Hypertension [Fatal]
  - Arteriosclerosis coronary artery [Unknown]
  - Bradycardia [Unknown]
  - Sleep disorder [Unknown]
  - Vitamin B12 deficiency [Unknown]
  - Gastrointestinal haemorrhage [Unknown]
  - Arthralgia [Unknown]
  - Atrial fibrillation [Unknown]
  - Chronic sinusitis [Unknown]
  - Atelectasis [Unknown]
  - Dehydration [Unknown]
  - Vomiting [Unknown]
  - Pelvic pain [Unknown]
  - Arthropathy [Unknown]
  - Anaemia [Unknown]
  - Nausea [Unknown]
  - Intervertebral disc degeneration [Unknown]
  - Hiatus hernia [Unknown]
  - Gastritis [Unknown]
  - Dyspepsia [Unknown]
  - Anxiety [Unknown]
